FAERS Safety Report 21533411 (Version 2)
Quarter: 2022Q4

REPORT INFORMATION
  Report Type: Report from Study
  Country: CO (occurrence: CO)
  Receive Date: 20221101
  Receipt Date: 20221109
  Transmission Date: 20230112
  Serious: Yes (Other)
  Sender: FDA-Public Use
  Company Number: CO-BAYER-2022A150477

PATIENT
  Age: 85 Year
  Sex: Female

DRUGS (2)
  1. EYLEA [Suspect]
     Active Substance: AFLIBERCEPT
     Indication: Neovascular age-related macular degeneration
     Dosage: 2 MG, BOTH EYES, SOLUTION FOR INJECTION; STRENGTH: 40 MG/ML
     Route: 031
     Dates: start: 20220406
  2. EYLEA [Suspect]
     Active Substance: AFLIBERCEPT
     Dosage: 2 MG, BOTH EYES, SOLUTION FOR INJECTION; STRENGTH: 40 MG/ML
     Route: 031
     Dates: start: 20220511, end: 20220511

REACTIONS (3)
  - Glaucoma [Not Recovered/Not Resolved]
  - Intraocular pressure increased [Not Recovered/Not Resolved]
  - Drug ineffective [Not Recovered/Not Resolved]

NARRATIVE: CASE EVENT DATE: 20221001
